FAERS Safety Report 25498789 (Version 1)
Quarter: 2025Q3

REPORT INFORMATION
  Report Type: Report from Study
  Country: US (occurrence: US)
  Receive Date: 20250701
  Receipt Date: 20250701
  Transmission Date: 20251020
  Serious: No
  Sender: DECIPHERA PHARMACEUTICALS
  Company Number: US-DECIPHERA PHARMACEUTICALS LLC-2025US000724

PATIENT
  Age: 44 Year
  Sex: Male

DRUGS (3)
  1. ROMVIMZA [Suspect]
     Active Substance: VIMSELTINIB
     Indication: Connective tissue neoplasm
     Dosage: 30 MILLIGRAM, TWICE WEEKLY
     Route: 048
     Dates: start: 20250321
  2. ROMVIMZA [Suspect]
     Active Substance: VIMSELTINIB
     Indication: Soft tissue neoplasm
  3. OGSIVEO [Suspect]
     Active Substance: NIROGACESTAT HYDROBROMIDE
     Indication: Product used for unknown indication

REACTIONS (1)
  - Adverse drug reaction [Unknown]

NARRATIVE: CASE EVENT DATE: 20250101
